FAERS Safety Report 16060600 (Version 1)
Quarter: 2019Q1

REPORT INFORMATION
  Report Type: Report from Study
  Country: US (occurrence: US)
  Receive Date: 20190312
  Receipt Date: 20190312
  Transmission Date: 20190418
  Serious: Yes (Hospitalization)
  Sender: FDA-Public Use
  Company Number: US-ROCHE-2280443

PATIENT
  Age: 49 Year
  Sex: Male
  Weight: 80.1 kg

DRUGS (2)
  1. ERLOTINIB [Suspect]
     Active Substance: ERLOTINIB
     Indication: PAPILLARY RENAL CELL CARCINOMA
     Route: 048
     Dates: start: 20161020
  2. BEVACIZUMAB. [Suspect]
     Active Substance: BEVACIZUMAB
     Indication: PAPILLARY RENAL CELL CARCINOMA
     Route: 042
     Dates: start: 20161020

REACTIONS (1)
  - Blood creatine phosphokinase increased [Unknown]

NARRATIVE: CASE EVENT DATE: 20190307
